FAERS Safety Report 21734252 (Version 1)
Quarter: 2022Q4

REPORT INFORMATION
  Report Type: Spontaneous
  Country: US (occurrence: US)
  Receive Date: 20221215
  Receipt Date: 20221215
  Transmission Date: 20230113
  Serious: No
  Sender: FDA-Public Use
  Company Number: US-VIIV HEALTHCARE LIMITED-US2022AMR183677

PATIENT
  Age: 32 Year
  Sex: Female

DRUGS (8)
  1. RILPIVIRINE [Suspect]
     Active Substance: RILPIVIRINE
     Indication: Product used for unknown indication
     Dosage: UNK, 600MG/900MG
     Route: 065
     Dates: start: 20220622
  2. RILPIVIRINE [Suspect]
     Active Substance: RILPIVIRINE
     Dosage: UNK, 600MG/900MG
     Route: 065
     Dates: start: 202207
  3. RILPIVIRINE [Suspect]
     Active Substance: RILPIVIRINE
     Dosage: UNK, 600MG/900MG
     Route: 065
     Dates: start: 202209
  4. RILPIVIRINE [Suspect]
     Active Substance: RILPIVIRINE
     Dosage: UNK, 600MG/900MG
     Route: 065
     Dates: start: 202211
  5. CABOTEGRAVIR [Suspect]
     Active Substance: CABOTEGRAVIR
     Indication: Product used for unknown indication
     Dosage: UNK, 600MG/900MG
     Route: 065
     Dates: start: 20220622
  6. CABOTEGRAVIR [Suspect]
     Active Substance: CABOTEGRAVIR
     Dosage: UNK, 600MG/900MG
     Route: 065
     Dates: start: 202207
  7. CABOTEGRAVIR [Suspect]
     Active Substance: CABOTEGRAVIR
     Dosage: UNK, 600MG/900MG
     Route: 065
     Dates: start: 202209
  8. CABOTEGRAVIR [Suspect]
     Active Substance: CABOTEGRAVIR
     Dosage: UNK, 600MG/900MG
     Route: 065
     Dates: start: 202211

REACTIONS (2)
  - Viral load increased [Unknown]
  - Wrong technique in device usage process [Unknown]

NARRATIVE: CASE EVENT DATE: 20220101
